FAERS Safety Report 5417476-3 (Version None)
Quarter: 2007Q3

REPORT INFORMATION
  Report Type: 
  Country: None (occurrence: None)
  Receive Date: 20070816
  Receipt Date: 20070806
  Transmission Date: 20080115
  Serious: Yes (Hospitalization)
  Sender: FDA-Public Use
  Company Number: US-ABBOTT-07P-163-0376847-00

PATIENT
  Sex: Male
  Weight: 73.548 kg

DRUGS (7)
  1. NIASPAN [Suspect]
     Indication: BLOOD CHOLESTEROL INCREASED
     Route: 048
     Dates: start: 20050101
  2. ATORVASTATIN CALCIUM [Concomitant]
     Indication: BLOOD CHOLESTEROL INCREASED
  3. PLATEL [Concomitant]
     Indication: INTERMITTENT CLAUDICATION
  4. MULTIVITAMIN [Concomitant]
     Indication: VITAMIN SUPPLEMENTATION
  5. LOTREL [Concomitant]
     Indication: BLOOD PRESSURE
     Dosage: 5/20 MG
     Route: 048
  6. ATENOLOL [Concomitant]
     Indication: BLOOD PRESSURE
     Route: 048
  7. ASPIRIN [Concomitant]
     Indication: CARDIAC DISORDER
     Route: 048

REACTIONS (8)
  - CHROMATURIA [None]
  - FAECES PALE [None]
  - FATIGUE [None]
  - HEPATITIS [None]
  - JAUNDICE [None]
  - POLYP [None]
  - PROSTATE INFECTION [None]
  - PRURITUS [None]
